FAERS Safety Report 5741852-2 (Version None)
Quarter: 2008Q2

REPORT INFORMATION
  Report Type: 
  Country: None (occurrence: None)
  Receive Date: 20080519
  Receipt Date: 20080513
  Transmission Date: 20081010
  Serious: No
  Sender: FDA-Public Use
  Company Number: US-BAYER-200822701NA

PATIENT
  Sex: Female

DRUGS (1)
  1. MIRENA [Suspect]
     Indication: DRUG USE FOR UNKNOWN INDICATION
     Route: 015
     Dates: start: 20071201

REACTIONS (6)
  - AMENORRHOEA [None]
  - FEELING ABNORMAL [None]
  - NAUSEA [None]
  - OVARIAN CYST [None]
  - PREGNANCY TEST FALSE POSITIVE [None]
  - VAGINAL HAEMORRHAGE [None]
